FAERS Safety Report 8755982 (Version 3)
Quarter: 2013Q2

REPORT INFORMATION
  Report Type: Spontaneous
  Country: US (occurrence: None)
  Receive Date: 20120814
  Receipt Date: 20130508
  Transmission Date: 20140414
  Serious: Yes (Hospitalization)
  Sender: FDA-Public Use
  Company Number: FK201202252

PATIENT
  Age: 38 Year
  Sex: Female
  Weight: 68.3 kg

DRUGS (10)
  1. CARBOPLATIN [Suspect]
     Indication: OVARIAN CANCER
     Route: 042
     Dates: start: 20110914, end: 20111027
  2. GEMCITABINE [Suspect]
     Indication: OVARIAN CANCER
     Dates: start: 20120208, end: 20120208
  3. PACLITAXEL [Suspect]
     Indication: OVARIAN CANCER
     Dosage: 1 IN 3 WK
     Route: 042
     Dates: start: 20110914, end: 20120105
  4. FARLETUZUMAB [Suspect]
     Indication: OVARIAN CANCER
     Dosage: BLINDED DOSE
     Route: 042
     Dates: start: 20110914, end: 20120105
  5. HEPARIN (HEPARIN) [Concomitant]
  6. ENOXAPARIN [Concomitant]
  7. PYRIDOXINE [Concomitant]
  8. METOCLOPRAMIDE [Concomitant]
  9. TRIACT [Concomitant]
  10. FLUIMUCIL [Concomitant]

REACTIONS (6)
  - Platelet count decreased [None]
  - Ascites [None]
  - Disease progression [None]
  - Pulmonary embolism [None]
  - Metastases to liver [None]
  - Metastases to peritoneum [None]
